FAERS Safety Report 20999791 (Version 1)
Quarter: 2022Q2

REPORT INFORMATION
  Report Type: Spontaneous
  Country: IN (occurrence: IN)
  Receive Date: 20220623
  Receipt Date: 20220623
  Transmission Date: 20220721
  Serious: Yes (Other)
  Sender: FDA-Public Use
  Company Number: IN-FreseniusKabi-FK202208764

PATIENT
  Age: 4 Year
  Sex: Female

DRUGS (2)
  1. CARBOPLATIN [Suspect]
     Active Substance: CARBOPLATIN
     Indication: Nephroblastoma
     Dosage: ADMINISTERED AT WEEKS 4 AND 10 OF ADJUVANT CHEMOTHERAPY?AT A DOSE OF 600 MG/M2
  2. ETOPOSIDE [Suspect]
     Active Substance: ETOPOSIDE
     Indication: Nephroblastoma

REACTIONS (1)
  - Fanconi syndrome [Unknown]
